FAERS Safety Report 9804019 (Version 1)
Quarter: 2014Q1

REPORT INFORMATION
  Report Type: Spontaneous
  Country: CL (occurrence: CL)
  Receive Date: 20140108
  Receipt Date: 20140108
  Transmission Date: 20141002
  Serious: Yes (Other)
  Sender: FDA-Public Use
  Company Number: CL-PFIZER INC-2014004373

PATIENT
  Age: 71 Year
  Sex: Female

DRUGS (9)
  1. ALTRULINE [Suspect]
     Indication: MOOD ALTERED
     Dosage: 1 DF (TABLET), DAILY
     Dates: start: 2010
  2. CARDIOASPIRINA [Concomitant]
     Dosage: IN THE MORNING
     Dates: start: 1999
  3. CHLORPHENAMINE [Concomitant]
     Dosage: 1 TABLET EVERY 12 HOURS
  4. GANFORT [Concomitant]
     Dosage: 1 DROP PER EYE AT NIGHT
     Dates: start: 1992
  5. AMLODIPINE BESILATE [Concomitant]
     Dosage: 5 MG, 2X/DAY
     Dates: start: 2000
  6. TELMISARTAN [Concomitant]
     Dosage: 40 MG, 2X/DAY
  7. ESPIRONOLACTONA [Concomitant]
     Dosage: 1 DF (TABLET), DAILY IN THE MORNING
  8. NEOREN [Concomitant]
     Dosage: 1 DF (TABLET), DAILY IN THE MORNING
  9. PLAVIX [Concomitant]
     Dosage: 75 MG, 1X/DAY
     Dates: start: 2010

REACTIONS (6)
  - Arterial therapeutic procedure [Unknown]
  - Deafness unilateral [Not Recovered/Not Resolved]
  - Immobile [Not Recovered/Not Resolved]
  - Paraesthesia [Not Recovered/Not Resolved]
  - Tinnitus [Not Recovered/Not Resolved]
  - Fracture [Not Recovered/Not Resolved]
